FAERS Safety Report 25544281 (Version 1)
Quarter: 2025Q3

REPORT INFORMATION
  Report Type: Spontaneous
  Country: EU (occurrence: None)
  Receive Date: 20250711
  Receipt Date: 20250711
  Transmission Date: 20251021
  Serious: Yes (Hospitalization, Disabling)
  Sender: FDA-CTU
  Company Number: None

PATIENT
  Age: 58 Year
  Sex: Male
  Weight: 95 kg

DRUGS (1)
  1. ZOLOFT [Suspect]
     Active Substance: SERTRALINE HYDROCHLORIDE
     Indication: Stress
     Dosage: FREQUENCY : AT BEDTIME;?
     Route: 048
     Dates: start: 20180903, end: 20210301

REACTIONS (27)
  - Pain [None]
  - Headache [None]
  - Nervousness [None]
  - Dizziness [None]
  - Nausea [None]
  - Neck pain [None]
  - Musculoskeletal stiffness [None]
  - Electric shock sensation [None]
  - Ear pain [None]
  - Tinnitus [None]
  - Vision blurred [None]
  - Metamorphopsia [None]
  - Myalgia [None]
  - Musculoskeletal stiffness [None]
  - Gait disturbance [None]
  - Pain in extremity [None]
  - Chest pain [None]
  - Dyspnoea [None]
  - Skin burning sensation [None]
  - Dry mouth [None]
  - Oropharyngeal pain [None]
  - Throat irritation [None]
  - Abdominal pain upper [None]
  - Influenza like illness [None]
  - Peripheral coldness [None]
  - Insomnia [None]
  - Impaired work ability [None]

NARRATIVE: CASE EVENT DATE: 20210301
